FAERS Safety Report 6433348-X (Version None)
Quarter: 2009Q4

REPORT INFORMATION
  Report Type: 
  Country: None (occurrence: None)
  Receive Date: 20091109
  Receipt Date: 20091105
  Transmission Date: 20100525
  Serious: Yes (Hospitalization, Other)
  Sender: FDA-Public Use
  Company Number: SE-AMGEN-UK365211

PATIENT
  Sex: Female

DRUGS (1)
  1. NPLATE [Suspect]
     Indication: IDIOPATHIC THROMBOCYTOPENIC PURPURA
     Route: 065
     Dates: start: 20090605

REACTIONS (5)
  - B-CELL LYMPHOMA [None]
  - METASTASES TO BONE [None]
  - MYALGIA [None]
  - SCIATICA [None]
  - SENSORY LOSS [None]
